FAERS Safety Report 4558601-6 (Version None)
Quarter: 2005Q1

REPORT INFORMATION
  Report Type: 
  Country: None (occurrence: None)
  Receive Date: 20050121
  Receipt Date: 20050112
  Transmission Date: 20050727
  Serious: Yes (Other)
  Sender: FDA-Public Use
  Company Number: AU-ROCHE-392389

PATIENT
  Sex: Female

DRUGS (3)
  1. ROACCUTANE [Suspect]
     Indication: DRUG USE FOR UNKNOWN INDICATION
     Route: 048
     Dates: start: 20040715, end: 20041015
  2. ROACCUTANE [Suspect]
     Route: 048
     Dates: start: 20041015
  3. ROACCUTANE [Suspect]
     Route: 048

REACTIONS (10)
  - ANGER [None]
  - ANXIETY [None]
  - COGNITIVE DISORDER [None]
  - DEPRESSION [None]
  - DRY SKIN [None]
  - FATIGUE [None]
  - HYPERSOMNIA [None]
  - MOOD SWINGS [None]
  - SUICIDAL IDEATION [None]
  - WEIGHT DECREASED [None]
